FAERS Safety Report 9310256 (Version 3)
Quarter: 2013Q2

REPORT INFORMATION
  Report Type: Report from Study
  Country: US (occurrence: US)
  Receive Date: 20130527
  Receipt Date: 20130612
  Transmission Date: 20140414
  Serious: Yes (Death)
  Sender: FDA-Public Use
  Company Number: PHHO2013US006785

PATIENT
  Age: 53 Year
  Sex: Female
  Weight: 69.84 kg

DRUGS (6)
  1. ALISKIREN [Suspect]
     Indication: CARDIAC FAILURE CHRONIC
     Dosage: UNK
     Route: 048
     Dates: start: 20100309
  2. CARVEDILOL [Concomitant]
     Indication: CARDIOMYOPATHY
     Dosage: 40 MG, BID
     Route: 048
     Dates: start: 20121106
  3. FUROSEMIDE [Concomitant]
     Indication: CARDIOMYOPATHY
     Dosage: 40 MG, QD
     Route: 048
     Dates: start: 20100511
  4. LOVASTATIN [Concomitant]
     Indication: HYPERLIPIDAEMIA
     Dosage: 40 MG, QHS
     Route: 048
     Dates: start: 20111220, end: 20130516
  5. NITROSTAT [Concomitant]
     Indication: ANGINA PECTORIS
     Dosage: 0.4 MG, PRN
     Route: 058
     Dates: start: 20120312
  6. SPIRONOLACTONE [Concomitant]
     Indication: CARDIOMYOPATHY
     Dosage: 25 MG, QD
     Route: 048
     Dates: start: 20100302

REACTIONS (1)
  - Sudden cardiac death [Fatal]
